FAERS Safety Report 5221212-3 (Version None)
Quarter: 2007Q1

REPORT INFORMATION
  Report Type: 
  Country: None (occurrence: None)
  Receive Date: 20070126
  Receipt Date: 20070119
  Transmission Date: 20070707
  Serious: Yes (Hospitalization)
  Sender: FDA-Public Use
  Company Number: CA-BOEHRINGER INGELHEIM PHARMACEUTICALS, INC.-2007-CN-00066CN

PATIENT
  Sex: Female

DRUGS (1)
  1. MICARDIS [Suspect]
     Dates: start: 20060803

REACTIONS (2)
  - HAEMORRHAGE [None]
  - INFLUENZA LIKE ILLNESS [None]
